FAERS Safety Report 16445826 (Version 3)
Quarter: 2019Q3

REPORT INFORMATION
  Report Type: Report from Study
  Country: DE (occurrence: DE)
  Receive Date: 20190618
  Receipt Date: 20190702
  Transmission Date: 20191004
  Serious: Yes (Hospitalization, Other)
  Sender: FDA-Public Use
  Company Number: DE-AMGEN-DEUNI2019089625

PATIENT
  Age: 42 Year
  Sex: Female
  Weight: 52 kg

DRUGS (10)
  1. ADALIMUMAB [Suspect]
     Active Substance: ADALIMUMAB
     Dosage: 40 MILLIGRAM
     Route: 065
     Dates: start: 20190423
  2. PREDNISOLON [PREDNISOLONE] [Concomitant]
     Active Substance: PREDNISOLONE
     Indication: CROHN^S DISEASE
     Dosage: 30 MILLIGRAM, QD
     Dates: start: 20180801
  3. ADALIMUMAB [Suspect]
     Active Substance: ADALIMUMAB
     Dosage: 80 MILLIGRAM
     Route: 065
     Dates: start: 20190326
  4. ADALIMUMAB [Suspect]
     Active Substance: ADALIMUMAB
     Dosage: 40 MILLIGRAM
     Route: 065
     Dates: start: 20190507
  5. ADALIMUMAB [Suspect]
     Active Substance: ADALIMUMAB
     Dosage: 40 MILLIGRAM
     Route: 065
     Dates: start: 20190514
  6. ADALIMUMAB [Suspect]
     Active Substance: ADALIMUMAB
     Dosage: 40 MILLIGRAM
     Route: 065
     Dates: start: 20190521
  7. PREDNISOLON [PREDNISOLONE] [Concomitant]
     Active Substance: PREDNISOLONE
     Dosage: UNK
     Route: 065
  8. DEKRISTOL [Concomitant]
     Active Substance: CHOLECALCIFEROL
     Indication: VITAMIN D DEFICIENCY
     Dosage: 20000 INTERNATIONAL UNIT, QWK
     Dates: start: 20190215
  9. ADALIMUMAB [Suspect]
     Active Substance: ADALIMUMAB
     Dosage: 40 MILLIGRAM
     Route: 065
     Dates: start: 20190409
  10. ADALIMUMAB [Suspect]
     Active Substance: ADALIMUMAB
     Indication: CROHN^S DISEASE
     Dosage: 160 MILLIGRAM
     Route: 065
     Dates: start: 20190312

REACTIONS (3)
  - Anastomotic stenosis [Recovered/Resolved]
  - Subileus [Recovered/Resolved]
  - Crohn^s disease [Recovered/Resolved]

NARRATIVE: CASE EVENT DATE: 20190603
